FAERS Safety Report 5511099-3 (Version None)
Quarter: 2007Q4

REPORT INFORMATION
  Report Type: 
  Country: None (occurrence: None)
  Receive Date: 20071107
  Receipt Date: 20071022
  Transmission Date: 20080405
  Serious: Yes (Other)
  Sender: FDA-Public Use
  Company Number: 8027761

PATIENT
  Sex: Female

DRUGS (1)
  1. KEPPRA [Suspect]
     Indication: STATUS EPILEPTICUS
     Dosage: IV; 1500 MG IV
     Route: 042
     Dates: start: 20061114

REACTIONS (2)
  - ACUTE HEPATIC FAILURE [None]
  - RENAL AND LIVER TRANSPLANT [None]
